FAERS Safety Report 14909660 (Version 5)
Quarter: 2019Q2

REPORT INFORMATION
  Report Type: Report from Study
  Country: US (occurrence: US)
  Receive Date: 20180517
  Receipt Date: 20190627
  Transmission Date: 20190711
  Serious: Yes (Hospitalization)
  Sender: FDA-Public Use
  Company Number: PHEH2018US019015

PATIENT
  Sex: Male

DRUGS (3)
  1. AFINITOR DISPERZ [Suspect]
     Active Substance: EVEROLIMUS
     Dosage: 2.5 MG, UNK
     Route: 048
  2. AFINITOR DISPERZ [Suspect]
     Active Substance: EVEROLIMUS
     Dosage: 5 MG, UNK
     Route: 048
  3. AFINITOR DISPERZ [Suspect]
     Active Substance: EVEROLIMUS
     Indication: ASTROCYTOMA, LOW GRADE
     Dosage: 3 MG, QD
     Route: 048
     Dates: start: 20180309, end: 20181226

REACTIONS (7)
  - Pyrexia [Unknown]
  - Rhabdomyoma [Recovered/Resolved]
  - Influenza [Unknown]
  - Malaise [Not Recovered/Not Resolved]
  - Epilepsy [Unknown]
  - Skin lesion [Recovering/Resolving]
  - Skin haemorrhage [Recovered/Resolved]
